FAERS Safety Report 8948068 (Version 1)
Quarter: 2012Q4

REPORT INFORMATION
  Report Type: Spontaneous
  Country: US (occurrence: None)
  Receive Date: 20121203
  Receipt Date: 20121203
  Transmission Date: 20130627
  Serious: Yes (Other)
  Sender: FDA-Public Use
  Company Number: None

PATIENT
  Age: 52 Year
  Sex: Male
  Weight: 79.38 kg

DRUGS (2)
  1. CITALOPRAM [Suspect]
     Indication: ANXIETY
     Dates: start: 20120101, end: 20121119
  2. CITALOPRAM [Suspect]
     Indication: DEPRESSION
     Dates: start: 20120101, end: 20121119

REACTIONS (6)
  - Tinnitus [None]
  - Nightmare [None]
  - Anger [None]
  - Feeling abnormal [None]
  - Sinus headache [None]
  - Headache [None]
